FAERS Safety Report 9119022 (Version 2)
Quarter: 2013Q4

REPORT INFORMATION
  Report Type: Spontaneous
  Country: US (occurrence: US)
  Receive Date: 20130226
  Receipt Date: 20131002
  Transmission Date: 20140711
  Serious: No
  Sender: FDA-Public Use
  Company Number: US-BIOGENIDEC-2013BI016256

PATIENT
  Age: 37 Year
  Sex: Female

DRUGS (1)
  1. TYSABRI [Suspect]
     Indication: MULTIPLE SCLEROSIS
     Route: 042
     Dates: start: 20090515

REACTIONS (8)
  - Depression [Not Recovered/Not Resolved]
  - Pain [Recovered/Resolved]
  - Hyperreflexia [Recovered/Resolved]
  - Decreased vibratory sense [Not Recovered/Not Resolved]
  - Anxiety disorder [Unknown]
  - Phobia [Not Recovered/Not Resolved]
  - Hypocalcaemia [Not Recovered/Not Resolved]
  - Multiple sclerosis relapse [Unknown]
